FAERS Safety Report 13446974 (Version 3)
Quarter: 2017Q3

REPORT INFORMATION
  Report Type: Spontaneous
  Country: US (occurrence: US)
  Receive Date: 20170417
  Receipt Date: 20170705
  Transmission Date: 20171127
  Serious: No
  Sender: FDA-Public Use
  Company Number: US-PFIZER INC-2017163061

PATIENT
  Age: 71 Year
  Sex: Female
  Weight: 91 kg

DRUGS (24)
  1. VITAMIN C [Concomitant]
     Active Substance: ASCORBIC ACID
     Dosage: 500 MG, 3X/DAY; TAKE IT WITH FERROUS FUMERATE
  2. LEVODOPA/CARBIDOPA [Concomitant]
     Active Substance: CARBIDOPA\LEVODOPA
     Indication: RESTLESS LEGS SYNDROME
     Dosage: UNK
     Dates: end: 201704
  3. MAGNESIUM OXIDE. [Concomitant]
     Active Substance: MAGNESIUM OXIDE
     Indication: BLOOD MAGNESIUM DECREASED
     Dosage: 400 MG, 2X/DAY
  4. LYRICA [Suspect]
     Active Substance: PREGABALIN
     Indication: RESTLESS LEGS SYNDROME
     Dosage: 75 MG, 2X/DAY
     Dates: start: 20170406, end: 20170409
  5. LYRICA [Suspect]
     Active Substance: PREGABALIN
     Indication: NEUROPATHY PERIPHERAL
     Dosage: 25 MG, UNK (MG Q NOC X 1 WK THEN TWICE DAILY)
     Route: 048
     Dates: start: 20170410, end: 20170412
  6. ATORVASTATIN [Concomitant]
     Active Substance: ATORVASTATIN
     Indication: LIVER DISORDER
     Dosage: 10 MG, 1X/DAY
  7. BIOTIN [Concomitant]
     Active Substance: BIOTIN
     Indication: ALOPECIA
     Dosage: 2000 MG, 1X/DAY
  8. HYDROCODONE [Concomitant]
     Active Substance: HYDROCODONE
     Indication: NEUROPATHY PERIPHERAL
     Dosage: 10/325MG, 1-2 TABLETS EVERY SIX HOURS
     Route: 048
  9. RANITIDINE. [Concomitant]
     Active Substance: RANITIDINE
     Indication: GASTRIC DISORDER
     Dosage: 150 MG, 2X/DAY
  10. VITAMIN B12 [Concomitant]
     Active Substance: CYANOCOBALAMIN
     Indication: VITAMIN B12 DEFICIENCY
     Dosage: SHOT, ONCE A MONTH
  11. FLONASE [Concomitant]
     Active Substance: FLUTICASONE PROPIONATE
     Indication: SINUS OPERATION
     Dosage: 2 SPRAYS EACH NOSTRIL AT NIGHT
     Route: 045
  12. HYDROCODONE [Concomitant]
     Active Substance: HYDROCODONE
     Indication: MULTIPLE SCLEROSIS
  13. ROPINIROLE. [Concomitant]
     Active Substance: ROPINIROLE
     Indication: RESTLESS LEGS SYNDROME
     Dosage: 1MG IN THE MORNING, 2MG IN THE AFTERNOON, 3MG AT NIGHT.
  14. VITAMIN D3 [Concomitant]
     Active Substance: CHOLECALCIFEROL
     Dosage: 5000 IU, DAILY
  15. METFORMIN [Concomitant]
     Active Substance: METFORMIN HYDROCHLORIDE
     Indication: DIABETES MELLITUS
     Dosage: 500MG IN THE MORNING, 1000MG IN THE EVENING
  16. FERROUS FUMARATE [Concomitant]
     Active Substance: FERROUS FUMARATE
     Indication: IRON DEFICIENCY
     Dosage: 325 MG, 3X/DAY
  17. AZELASTINE [Concomitant]
     Active Substance: AZELASTINE
     Indication: RHINORRHOEA
     Dosage: 2 DF, 2X/DAY; 2 SPRAYS TWO TIMES A DAY
     Route: 045
  18. GLIMEPIRIDE. [Concomitant]
     Active Substance: GLIMEPIRIDE
     Indication: DIABETES MELLITUS
     Dosage: 4MG, TAKES TWO EVERY MORNING (TOTAL OF 8MG DOSE)
  19. NITROFURANTOIN. [Concomitant]
     Active Substance: NITROFURANTOIN
     Indication: PROPHYLAXIS
     Dosage: 50 MG, 1X/DAY
  20. NYSTOP [Concomitant]
     Active Substance: NYSTATIN
     Indication: SKIN IRRITATION
     Dosage: UNK, AS NEEDED
  21. ZOLPIDEM [Concomitant]
     Active Substance: ZOLPIDEM\ZOLPIDEM TARTRATE
     Indication: SLEEP DISORDER
     Dosage: 5 MG, AS NEEDED
  22. ATORVASTATIN [Concomitant]
     Active Substance: ATORVASTATIN
     Indication: CAROTID ARTERY OCCLUSION
  23. BETAMETHASONE DIPROPIONATE. [Concomitant]
     Active Substance: BETAMETHASONE DIPROPIONATE
     Indication: SKIN IRRITATION
     Dosage: UNK UNK, AS NEEDED
  24. DIAZEPAM. [Concomitant]
     Active Substance: DIAZEPAM
     Indication: ANXIETY
     Dosage: 10MG TABLET, CAN TAKE 1/2 TO 1 TABLET EVERY 12HRS AS NEEDED
     Route: 048

REACTIONS (10)
  - Dizziness [Recovering/Resolving]
  - Balance disorder [Unknown]
  - Dyskinesia [Unknown]
  - Ataxia [Unknown]
  - Feeling abnormal [Unknown]
  - Memory impairment [Unknown]
  - Disorientation [Recovering/Resolving]
  - Fatigue [Recovered/Resolved with Sequelae]
  - Cognitive disorder [Unknown]
  - Gait disturbance [Unknown]

NARRATIVE: CASE EVENT DATE: 20170407
